FAERS Safety Report 7280817-9 (Version None)
Quarter: 2011Q1

REPORT INFORMATION
  Report Type: 
  Country: None (occurrence: None)
  Receive Date: 20110208
  Receipt Date: 20110131
  Transmission Date: 20110831
  Serious: Yes (Other)
  Sender: FDA-Public Use
  Company Number: IT-BRISTOL-MYERS SQUIBB COMPANY-15527237

PATIENT
  Age: 66 Year
  Sex: Male

DRUGS (4)
  1. ATENOLOL [Suspect]
  2. COUMADIN [Suspect]
     Indication: ATRIAL FIBRILLATION
     Dosage: INTERRUPTED: 30JAN11, 1DF= 1UNIT
     Dates: start: 20090101
  3. TEGRETOL [Concomitant]
     Dosage: TEGRETOL  200MG TAB
  4. OLPRESS [Concomitant]

REACTIONS (2)
  - EPISTAXIS [None]
  - BLOOD PRESSURE INCREASED [None]
